FAERS Safety Report 6468856-9 (Version None)
Quarter: 2009Q4

REPORT INFORMATION
  Report Type: 
  Country: None (occurrence: None)
  Receive Date: 20091203
  Receipt Date: 20071126
  Transmission Date: 20100525
  Serious: No
  Sender: FDA-Public Use
  Company Number: US-ELI_LILLY_AND_COMPANY-US200601000166

PATIENT
  Sex: Female
  Weight: 117.1 kg

DRUGS (13)
  1. ZYPREXA [Suspect]
     Indication: BIPOLAR DISORDER
     Dosage: 5 MG, UNKNOWN
     Dates: start: 19970101, end: 20011001
  2. ZYPREXA [Suspect]
     Dosage: 5 MG, DAILY (1/D)
     Dates: start: 20021106
  3. SEROQUEL [Concomitant]
     Indication: BIPOLAR DISORDER
     Dosage: 25 MG, EACH EVENING
     Dates: start: 20020207, end: 20020101
  4. SEROQUEL [Concomitant]
     Dosage: 100 MG, EACH EVENING
     Dates: start: 20020701, end: 20021009
  5. SEROQUEL [Concomitant]
     Dosage: 200 MG, EACH EVENING
     Dates: start: 20021010, end: 20021106
  6. LITHIUM [Concomitant]
     Indication: MANIA
     Dosage: 600 MG, 2/D
     Dates: start: 19980902
  7. PRINIVIL [Concomitant]
     Indication: BLOOD PRESSURE
     Dosage: 20 MG, DAILY (1/D)
     Dates: start: 19980902, end: 20050828
  8. PRINIVIL [Concomitant]
     Dosage: 40 MG, DAILY (1/D)
     Dates: start: 20050829
  9. DEPAKOTE ER [Concomitant]
     Dosage: 500 MG, EACH EVENING
     Dates: start: 20021010
  10. PREMPRO [Concomitant]
     Dates: start: 20000505, end: 20030904
  11. PREMARIN [Concomitant]
     Dosage: 0.625 MEQ, DAILY (1/D)
  12. PROVERA [Concomitant]
     Dosage: 10 MG, DAILY (1/D)
     Dates: end: 20000101
  13. ESTRACE [Concomitant]
     Dosage: 1 MG, DAILY (1/D)
     Dates: end: 20000101

REACTIONS (4)
  - HYPERLIPIDAEMIA [None]
  - TYPE 2 DIABETES MELLITUS [None]
  - VAGINAL HAEMORRHAGE [None]
  - WEIGHT INCREASED [None]
